FAERS Safety Report 4649380-2 (Version None)
Quarter: 2005Q2

REPORT INFORMATION
  Report Type: 
  Country: None (occurrence: None)
  Receive Date: 20050427
  Receipt Date: 20050413
  Transmission Date: 20051028
  Serious: Yes (Hospitalization)
  Sender: FDA-Public Use
  Company Number: WAES 0411GBR00095

PATIENT
  Age: 72 Year
  Sex: Female

DRUGS (7)
  1. VIOXX [Suspect]
     Indication: NEOPLASM PROPHYLAXIS
     Dosage: 25 MG/DAILY PO
     Route: 048
     Dates: start: 20031103
  2. ASPIRIN [Concomitant]
  3. ATENOLOL [Concomitant]
  4. GLICLAZIDE [Concomitant]
  5. LANSOPRAZOLE [Concomitant]
  6. NITROGLYCERIN [Concomitant]
  7. SIMVASTATIN [Concomitant]

REACTIONS (10)
  - ABDOMINAL PAIN [None]
  - ANGINA PECTORIS [None]
  - BLOOD SODIUM DECREASED [None]
  - COLON CANCER [None]
  - GAMMA-GLUTAMYLTRANSFERASE INCREASED [None]
  - HAEMOGLOBIN DECREASED [None]
  - MONOCYTE COUNT INCREASED [None]
  - MYOCARDIAL ISCHAEMIA [None]
  - NAUSEA [None]
  - PLATELET COUNT DECREASED [None]
